FAERS Safety Report 9838581 (Version 1)
Quarter: 2014Q1

REPORT INFORMATION
  Report Type: Spontaneous
  Country: US (occurrence: US)
  Receive Date: 20140123
  Receipt Date: 20140123
  Transmission Date: 20141002
  Serious: Yes (Hospitalization, Other)
  Sender: FDA-Public Use
  Company Number: US-PFIZER INC-2014021367

PATIENT
  Age: 43 Year
  Sex: Female
  Weight: 88.44 kg

DRUGS (1)
  1. LYRICA [Suspect]
     Dosage: 200 MG, 3X/DAY
     Dates: start: 2013

REACTIONS (2)
  - Crohn^s disease [Unknown]
  - Gastric disorder [Unknown]
